FAERS Safety Report 9838757 (Version 1)
Quarter: 2014Q1

REPORT INFORMATION
  Report Type: Spontaneous
  Country: US (occurrence: None)
  Receive Date: 20140117
  Receipt Date: 20140117
  Transmission Date: 20141002
  Serious: Yes (Other)
  Sender: FDA-Public Use
  Company Number: None

PATIENT
  Age: 52 Year
  Sex: Male
  Weight: 119.75 kg

DRUGS (1)
  1. OCTAGAM 60GM OCTAPHARMA [Suspect]
     Indication: MYASTHENIA GRAVIS
     Dosage: 60 GM  2 DAYS MONTHLY INTRAVENOUS
     Route: 042
     Dates: start: 20140113, end: 20140113

REACTIONS (3)
  - Chest discomfort [None]
  - Restless legs syndrome [None]
  - Lymphadenopathy [None]
